FAERS Safety Report 9372729 (Version 1)
Quarter: 2013Q2

REPORT INFORMATION
  Report Type: Spontaneous
  Country: US (occurrence: US)
  Receive Date: 20130627
  Receipt Date: 20130627
  Transmission Date: 20140414
  Serious: Yes (Other)
  Sender: FDA-Public Use
  Company Number: US-009507513-1306USA013378

PATIENT
  Sex: Female

DRUGS (1)
  1. JANUVIA [Suspect]

REACTIONS (2)
  - Neoplasm malignant [Unknown]
  - Surgery [Unknown]
